FAERS Safety Report 7494004-2 (Version None)
Quarter: 2011Q2

REPORT INFORMATION
  Report Type: 
  Country: None (occurrence: None)
  Receive Date: 20110520
  Receipt Date: 20110518
  Transmission Date: 20111010
  Serious: Yes (Life-Threatening, Hospitalization)
  Sender: FDA-Public Use
  Company Number: US-EISAI INC-E7389-01131-CLI-US

PATIENT
  Sex: Female
  Weight: 81 kg

DRUGS (2)
  1. ERLOTINIB HYDROCHLORIDE [Concomitant]
     Dosage: UNKNOWN
     Route: 048
     Dates: start: 20101022
  2. EPIRUBICIN HYDROCHLORIDE [Suspect]
     Indication: LUNG CANCER METASTATIC
     Dosage: UNKNOWN
     Route: 041
     Dates: start: 20101008, end: 20110304

REACTIONS (1)
  - ACUTE RESPIRATORY FAILURE [None]
